FAERS Safety Report 10570003 (Version 1)
Quarter: 2014Q4

REPORT INFORMATION
  Report Type: Report from Study
  Country: US (occurrence: US)
  Receive Date: 20141107
  Receipt Date: 20141107
  Transmission Date: 20150529
  Serious: Yes (Death, Hospitalization)
  Sender: FDA-Public Use
  Company Number: US-BIOGENIDEC-2014BI112823

PATIENT
  Age: 48 Year
  Sex: Female

DRUGS (5)
  1. TROSPIUM [Concomitant]
     Active Substance: TROSPIUM
  2. ZARAH TABLETS [Concomitant]
  3. SERTRALINE [Concomitant]
     Active Substance: SERTRALINE HYDROCHLORIDE
  4. TECFIDERA [Suspect]
     Active Substance: DIMETHYL FUMARATE
     Indication: MULTIPLE SCLEROSIS
     Route: 048
     Dates: start: 20140430
  5. METRONIDAZOLE. [Concomitant]
     Active Substance: METRONIDAZOLE

REACTIONS (3)
  - Toxic shock syndrome [Fatal]
  - Cystitis [Unknown]
  - Death [Fatal]

NARRATIVE: CASE EVENT DATE: 20141003
